FAERS Safety Report 24203698 (Version 1)
Quarter: 2024Q3

REPORT INFORMATION
  Report Type: Report from Study
  Country: CA (occurrence: CA)
  Receive Date: 20240813
  Receipt Date: 20240813
  Transmission Date: 20241016
  Serious: Yes (Other)
  Sender: ACCORD
  Company Number: None

PATIENT
  Age: 14 Year
  Sex: Female

DRUGS (13)
  1. METHOTREXATE [Suspect]
     Active Substance: METHOTREXATE
     Indication: Product used for unknown indication
     Route: 065
  2. MYCOPHENOLATE MOFETIL [Suspect]
     Active Substance: MYCOPHENOLATE MOFETIL
     Indication: Vogt-Koyanagi-Harada disease
     Route: 065
  3. ACTEMRA [Suspect]
     Active Substance: TOCILIZUMAB
     Indication: Vogt-Koyanagi-Harada disease
     Dosage: 1 EVERY 2 WEEKS
     Route: 058
  4. SALICYLIC ACID [Concomitant]
     Active Substance: SALICYLIC ACID
  5. BETAMETHASONE CLOTRIMAZOLE [Concomitant]
     Active Substance: BETAMETHASONE DIPROPIONATE\CLOTRIMAZOLE
     Dosage: 3 EVERY 1 DAYS
     Route: 061
  6. CLOBETASOL PROPIONATE [Concomitant]
     Active Substance: CLOBETASOL PROPIONATE
     Route: 065
  7. CYCLOGYL [Concomitant]
     Active Substance: CYCLOPENTOLATE HYDROCHLORIDE
     Dosage: DROPS OPHTHALMIC, 1 EVERY 1 DAYS
  8. FOLIC ACID [Concomitant]
     Active Substance: FOLIC ACID
     Dosage: 3 EVERY 1 DAYS
     Route: 065
  9. IBUPROFEN [Concomitant]
     Active Substance: IBUPROFEN
  10. LATANOPROST [Concomitant]
     Active Substance: LATANOPROST
     Dosage: 1 EVERY 1 DAYS
     Route: 065
  11. DIETARY SUPPLEMENT [Concomitant]
     Active Substance: DIETARY SUPPLEMENT
  12. PREDNISONE [Concomitant]
     Active Substance: PREDNISONE
     Dosage: 4 EVERY 1 DAYS
     Route: 065
  13. REACTINE [Concomitant]

REACTIONS (11)
  - Psoriasis [Unknown]
  - Tooth disorder [Unknown]
  - Depression [Unknown]
  - Eye pain [Unknown]
  - Uveitis [Unknown]
  - Eye disorder [Unknown]
  - Feeling abnormal [Unknown]
  - Drug intolerance [Unknown]
  - Muscle spasms [Unknown]
  - Vogt-Koyanagi-Harada disease [Unknown]
  - Anxiety [Unknown]
